FAERS Safety Report 18359421 (Version 1)
Quarter: 2020Q4

REPORT INFORMATION
  Report Type: Spontaneous
  Country: US (occurrence: US)
  Receive Date: 20201007
  Receipt Date: 20201007
  Transmission Date: 20210114
  Serious: Yes (Death, Hospitalization)
  Sender: FDA-Public Use
  Company Number: None

PATIENT
  Age: 64 Year
  Sex: Male
  Weight: 87.99 kg

DRUGS (3)
  1. CABAZITAXEL [Suspect]
     Active Substance: CABAZITAXEL
     Dates: end: 20200812
  2. ABIRATERONE ACETATE. [Suspect]
     Active Substance: ABIRATERONE ACETATE
     Dates: end: 20200826
  3. PREDNISONE. [Suspect]
     Active Substance: PREDNISONE
     Dates: end: 20200826

REACTIONS (22)
  - Headache [None]
  - Haemorrhage [None]
  - Urinary retention [None]
  - Lethargy [None]
  - Muscular weakness [None]
  - Urethral obstruction [None]
  - Haematuria [None]
  - Subdural haematoma [None]
  - Cerebral disorder [None]
  - Cerebral haemorrhage [None]
  - Coagulopathy [None]
  - Facial paralysis [None]
  - Hemiparesis [None]
  - Incision site pain [None]
  - Dysarthria [None]
  - Tachypnoea [None]
  - General physical health deterioration [None]
  - Confusional state [None]
  - Depressed level of consciousness [None]
  - Somnolence [None]
  - Dysmetria [None]
  - Pleural effusion [None]

NARRATIVE: CASE EVENT DATE: 20200830
